FAERS Safety Report 8127049 (Version 5)
Quarter: 2012Q4

REPORT INFORMATION
  Report Type: 
  Country: US (occurrence: US)
  Receive Date: 20110908
  Receipt Date: 20120910
  Transmission Date: 20130627
  Serious: Yes (Hospitalization, Other)
  Sender: FDA-Public Use
  Company Number: US-ASTRAZENECA-2011SE27249

PATIENT
  Age: 55 Year
  Sex: Male
  Weight: 72.6 kg

DRUGS (27)
  1. SEROQUEL [Suspect]
     Indication: CONVULSION
     Route: 048
     Dates: end: 2011
  2. SEROQUEL [Suspect]
     Indication: BRAIN INJURY
     Route: 048
     Dates: end: 2011
  3. SEROQUEL [Suspect]
     Indication: SLEEP DISORDER
     Route: 048
     Dates: end: 2011
  4. SEROQUEL [Suspect]
     Indication: BIPOLAR II DISORDER
     Route: 048
     Dates: end: 2011
  5. SEROQUEL [Suspect]
     Indication: CONVULSION
     Route: 048
     Dates: end: 2011
  6. SEROQUEL [Suspect]
     Indication: BRAIN INJURY
     Route: 048
     Dates: end: 2011
  7. SEROQUEL [Suspect]
     Indication: SLEEP DISORDER
     Route: 048
     Dates: end: 2011
  8. SEROQUEL [Suspect]
     Indication: BIPOLAR II DISORDER
     Route: 048
     Dates: end: 2011
  9. SEROQUEL [Suspect]
     Indication: CONVULSION
     Route: 048
     Dates: start: 2011
  10. SEROQUEL [Suspect]
     Indication: BRAIN INJURY
     Route: 048
     Dates: start: 2011
  11. SEROQUEL [Suspect]
     Indication: SLEEP DISORDER
     Route: 048
     Dates: start: 2011
  12. SEROQUEL [Suspect]
     Indication: BIPOLAR II DISORDER
     Route: 048
     Dates: start: 2011
  13. SEROQUEL [Suspect]
     Indication: CONVULSION
     Route: 048
  14. SEROQUEL [Suspect]
     Indication: BRAIN INJURY
     Route: 048
  15. SEROQUEL [Suspect]
     Indication: SLEEP DISORDER
     Route: 048
  16. SEROQUEL [Suspect]
     Indication: BIPOLAR II DISORDER
     Route: 048
  17. SEROQUEL [Suspect]
     Indication: CONVULSION
     Route: 048
  18. SEROQUEL [Suspect]
     Indication: BRAIN INJURY
     Route: 048
  19. SEROQUEL [Suspect]
     Indication: SLEEP DISORDER
     Route: 048
  20. SEROQUEL [Suspect]
     Indication: BIPOLAR II DISORDER
     Route: 048
  21. SEROQUEL [Suspect]
     Indication: CONVULSION
     Route: 048
     Dates: end: 20120826
  22. SEROQUEL [Suspect]
     Indication: BRAIN INJURY
     Route: 048
     Dates: end: 20120826
  23. SEROQUEL [Suspect]
     Indication: SLEEP DISORDER
     Route: 048
     Dates: end: 20120826
  24. SEROQUEL [Suspect]
     Indication: BIPOLAR II DISORDER
     Route: 048
     Dates: end: 20120826
  25. TYLENOL [Concomitant]
     Dosage: UNKNOWN DOSE AS REQUIRED
  26. ALKASELTZER [Concomitant]
     Dosage: UNKNOWN DOSE AS REQUIRED
  27. DEPAKOTE [Concomitant]

REACTIONS (21)
  - Road traffic accident [Unknown]
  - Rib fracture [Unknown]
  - Fall [Unknown]
  - Face crushing [Unknown]
  - Blindness unilateral [Unknown]
  - Convulsion [Unknown]
  - Respiratory tract congestion [Unknown]
  - Influenza like illness [Unknown]
  - Amnesia [Unknown]
  - Depressed mood [Unknown]
  - Malaise [Unknown]
  - Adverse event [Unknown]
  - Anger [Unknown]
  - Anxiety [Unknown]
  - Alcohol abuse [Unknown]
  - Somnolence [Unknown]
  - Drug withdrawal syndrome [Unknown]
  - Drug dose omission [Unknown]
  - Wrong technique in drug usage process [Unknown]
  - Drug ineffective for unapproved indication [Unknown]
  - Off label use [Unknown]
